FAERS Safety Report 4767312-3 (Version None)
Quarter: 2005Q3

REPORT INFORMATION
  Report Type: 
  Country: None (occurrence: None)
  Receive Date: 20050913
  Receipt Date: 20050901
  Transmission Date: 20060218
  Serious: Yes (Other)
  Sender: FDA-Public Use
  Company Number: GB-GLAXOSMITHKLINE-B0392614A

PATIENT
  Age: 39 Year
  Sex: Male
  Weight: 73 kg

DRUGS (2)
  1. PAROXETINE [Suspect]
     Indication: ANXIETY
     Route: 048
     Dates: start: 20050324, end: 20050720
  2. ST JOHN'S WORT [Concomitant]
     Dates: end: 20050324

REACTIONS (1)
  - DIABETES MELLITUS [None]
